FAERS Safety Report 5893509-5 (Version None)
Quarter: 2008Q3

REPORT INFORMATION
  Report Type: 
  Country: None (occurrence: None)
  Receive Date: 20080919
  Receipt Date: 20080911
  Transmission Date: 20090109
  Serious: Yes (Hospitalization, Other)
  Sender: FDA-Public Use
  Company Number: RENA-1000192

PATIENT
  Sex: Female

DRUGS (3)
  1. RENAGEL [Suspect]
     Indication: HYPERPHOSPHATAEMIA
     Dosage: 1.6 G, BID, ORAL
     Route: 048
  2. HYPERTENSION MEDICATION UNKNOWN [Concomitant]
  3. DIABETES MEDICATION UNKNOWN [Concomitant]

REACTIONS (3)
  - CEREBROVASCULAR ACCIDENT [None]
  - PRURITUS [None]
  - PYREXIA [None]
